FAERS Safety Report 9689407 (Version 2)
Quarter: 2013Q4

REPORT INFORMATION
  Report Type: Other
  Country: DK (occurrence: US)
  Receive Date: 20131114
  Receipt Date: 20131122
  Transmission Date: 20140711
  Serious: Yes (Other)
  Sender: FDA-Public Use
  Company Number: US-FRI-1000051144

PATIENT
  Sex: Female

DRUGS (1)
  1. CITALOPRAM [Suspect]
     Indication: DEPRESSION

REACTIONS (1)
  - Arterial disorder [Unknown]
